FAERS Safety Report 18280172 (Version 2)
Quarter: 2022Q1

REPORT INFORMATION
  Report Type: Spontaneous
  Country: US (occurrence: US)
  Receive Date: 20200918
  Receipt Date: 20220223
  Transmission Date: 20220423
  Serious: No
  Sender: FDA-Public Use
  Company Number: US-SANOFI-00268993

PATIENT
  Age: 60 Year
  Sex: Female

DRUGS (2)
  1. DUPIXENT [Suspect]
     Active Substance: DUPILUMAB
     Dosage: UNK UNK, 1X
     Dates: start: 202004, end: 202004
  2. DUPIXENT [Suspect]
     Active Substance: DUPILUMAB
     Dosage: UNK
     Dates: start: 2020, end: 2020

REACTIONS (6)
  - Peripheral swelling [Recovered/Resolved]
  - Arthralgia [Recovered/Resolved]
  - Oral herpes [Recovered/Resolved]
  - Keratitis [Recovered/Resolved]
  - Asthma [Recovered/Resolved]
  - Chest discomfort [Recovered/Resolved]

NARRATIVE: CASE EVENT DATE: 20200101
